FAERS Safety Report 14685558 (Version 2)
Quarter: 2018Q2

REPORT INFORMATION
  Report Type: Report from Study
  Country: AR (occurrence: AR)
  Receive Date: 20180327
  Receipt Date: 20180404
  Transmission Date: 20180711
  Serious: Yes (Life-Threatening, Hospitalization)
  Sender: FDA-Public Use
  Company Number: PHHY2018AR052588

PATIENT
  Age: 71 Year
  Sex: Female

DRUGS (5)
  1. ALPLAX [Concomitant]
     Active Substance: ALPRAZOLAM
     Indication: PRODUCT USED FOR UNKNOWN INDICATION
     Dosage: 1 MG, BID (ONE IN THE MORNING AND ONE AT NIGHT)
     Route: 065
  2. CORBIS [Concomitant]
     Indication: PRODUCT USED FOR UNKNOWN INDICATION
     Route: 065
  3. ENTRESTO [Suspect]
     Active Substance: SACUBITRIL\VALSARTAN
     Indication: CARDIAC FAILURE
     Dosage: 50 MG, BID
     Route: 065
  4. FUROSEMIDE. [Concomitant]
     Active Substance: FUROSEMIDE
     Indication: PRODUCT USED FOR UNKNOWN INDICATION
     Route: 065
  5. ULCOZOL [Concomitant]
     Indication: PROPHYLAXIS
     Route: 065

REACTIONS (14)
  - Myocardial infarction [Recovering/Resolving]
  - Renal disorder [Recovered/Resolved]
  - Hypoaesthesia [Recovering/Resolving]
  - Cardiac failure [Recovering/Resolving]
  - Malaise [Recovering/Resolving]
  - Apparent death [Recovered/Resolved]
  - Skin discolouration [Recovered/Resolved]
  - Nervousness [Not Recovered/Not Resolved]
  - Drug ineffective [Unknown]
  - Haematuria [Recovered/Resolved]
  - Dehydration [Recovered/Resolved]
  - Syncope [Recovered/Resolved]
  - Sciatica [Recovering/Resolving]
  - Stress [Not Recovered/Not Resolved]

NARRATIVE: CASE EVENT DATE: 201710
